FAERS Safety Report 6025339-8 (Version None)
Quarter: 2008Q4

REPORT INFORMATION
  Report Type: 
  Country: None (occurrence: None)
  Receive Date: 20081231
  Receipt Date: 20081223
  Transmission Date: 20090506
  Serious: Yes (Disabling)
  Sender: FDA-Public Use
  Company Number: US-MERCK-0807USA02787

PATIENT
  Age: 57 Year
  Sex: Male
  Weight: 136 kg

DRUGS (7)
  1. ISENTRESS [Suspect]
     Indication: HIV INFECTION
     Route: 048
     Dates: start: 20060101
  2. NORVIR [Concomitant]
     Indication: HIV INFECTION
     Route: 048
  3. PREZISTA [Concomitant]
     Route: 048
  4. TRUVADA [Concomitant]
     Route: 048
  5. INTELENCE [Concomitant]
     Route: 048
  6. DAPSONE [Concomitant]
     Route: 048
  7. ZITHROMAX [Concomitant]
     Indication: PROPHYLAXIS
     Route: 065

REACTIONS (4)
  - ABDOMINAL DISTENSION [None]
  - INCREASED APPETITE [None]
  - OEDEMA PERIPHERAL [None]
  - WEIGHT INCREASED [None]
